FAERS Safety Report 12598086 (Version 1)
Quarter: 2016Q3

REPORT INFORMATION
  Report Type: Spontaneous
  Country: US (occurrence: US)
  Receive Date: 20160726
  Receipt Date: 20160726
  Transmission Date: 20161109
  Serious: No
  Sender: FDA-Public Use
  Company Number: US-BANPHARM-20164630

PATIENT
  Sex: Male

DRUGS (2)
  1. AMANTADINE UNKNOWN PRODUCT [Suspect]
     Active Substance: AMANTADINE
     Indication: PARKINSON^S DISEASE
  2. AMANTADINE HYDROCHLORIDE CAPSULES 100 MG [Suspect]
     Active Substance: AMANTADINE HYDROCHLORIDE
     Indication: PARKINSON^S DISEASE
     Route: 048

REACTIONS (1)
  - Condition aggravated [Unknown]
